FAERS Safety Report 15825862 (Version 1)
Quarter: 2018Q4

REPORT INFORMATION
  Report Type: Spontaneous
  Country: US (occurrence: US)
  Receive Date: 20181217
  Receipt Date: 20181217
  Transmission Date: 20190205
  Serious: Yes (Hospitalization, Disabling)
  Sender: FDA-Public Use
  Company Number: None

PATIENT
  Sex: Female
  Weight: 63.5 kg

DRUGS (4)
  1. PRADAXA [Suspect]
     Active Substance: DABIGATRAN ETEXILATE MESYLATE
     Indication: CEREBROVASCULAR ACCIDENT
     Dosage: WAS 2 TIMES CHANGED TO 1  1 PER DAY BY MOUTH
     Route: 048
     Dates: end: 20181128
  2. TYLENOL [Concomitant]
     Active Substance: ACETAMINOPHEN
  3. BABY ASPIRIN [Concomitant]
     Active Substance: ASPIRIN
  4. ELQUIS [Concomitant]

REACTIONS (3)
  - Diarrhoea [None]
  - Vomiting [None]
  - Malaise [None]
